FAERS Safety Report 9665712 (Version 3)
Quarter: 2014Q2

REPORT INFORMATION
  Report Type: Spontaneous
  Country: GB (occurrence: GB)
  Receive Date: 20131104
  Receipt Date: 20140502
  Transmission Date: 20141212
  Serious: Yes (Death, Other)
  Sender: FDA-Public Use
  Company Number: GB-ABBVIE-13P-167-1165000-00

PATIENT
  Age: 32 Week
  Sex: Female

DRUGS (3)
  1. KALETRA [Suspect]
     Indication: MATERNAL EXPOSURE TIMING UNSPECIFIED
     Route: 064
  2. RALTEGRAVIR [Suspect]
     Indication: MATERNAL EXPOSURE TIMING UNSPECIFIED
     Route: 064
  3. TRUVADA [Suspect]
     Indication: MATERNAL EXPOSURE TIMING UNSPECIFIED
     Route: 064

REACTIONS (18)
  - Intraventricular haemorrhage neonatal [Fatal]
  - Foetal exposure during pregnancy [Unknown]
  - Necrosis [Fatal]
  - Renal tubular necrosis [Fatal]
  - Kidney malformation [Fatal]
  - Thymus hypoplasia [Fatal]
  - Neonatal respiratory failure [Fatal]
  - Anaemia [Fatal]
  - Metabolic acidosis [Fatal]
  - Hypotension [Fatal]
  - Hypotonia [Fatal]
  - Neonatal cardiac failure [Fatal]
  - Hydrocephalus [Fatal]
  - Premature baby [Unknown]
  - Cerebral haemorrhage neonatal [Fatal]
  - Cerebral infarction [Fatal]
  - Central nervous system necrosis [Fatal]
  - Congenital spinal cord anomaly [Fatal]
